FAERS Safety Report 18387684 (Version 5)
Quarter: 2021Q3

REPORT INFORMATION
  Report Type: Report from Study
  Country: US (occurrence: US)
  Receive Date: 20201015
  Receipt Date: 20210824
  Transmission Date: 20211014
  Serious: No
  Sender: FDA-Public Use
  Company Number: NVSC2020US274437

PATIENT
  Age: 56 Year

DRUGS (1)
  1. ENTRESTO [Suspect]
     Active Substance: SACUBITRIL\VALSARTAN
     Indication: PRODUCT USED FOR UNKNOWN INDICATION
     Dosage: 24.26 MG, BID
     Route: 048
     Dates: start: 20200813

REACTIONS (8)
  - Fatigue [Unknown]
  - Pain [Unknown]
  - Oedema [Unknown]
  - Angiogram [Unknown]
  - Ejection fraction decreased [Unknown]
  - Product dose omission issue [Unknown]
  - Dehydration [Unknown]
  - Blood pressure normal [Unknown]

NARRATIVE: CASE EVENT DATE: 20210813
